FAERS Safety Report 25893112 (Version 1)
Quarter: 2025Q4

REPORT INFORMATION
  Report Type: Spontaneous
  Country: AU (occurrence: None)
  Receive Date: 20251008
  Receipt Date: 20251008
  Transmission Date: 20260118
  Serious: Yes (Hospitalization, Other)
  Sender: ENDO
  Company Number: AU-ENDO USA, INC.-2025-002006

PATIENT
  Age: 68 Year
  Sex: Male

DRUGS (1)
  1. AVEED [Suspect]
     Active Substance: TESTOSTERONE UNDECANOATE
     Indication: Product used for unknown indication
     Dosage: 1 DOSAGE FORM, UNKNOWN
     Route: 065

REACTIONS (3)
  - Cyanosis central [Unknown]
  - Anaphylactic reaction [Unknown]
  - Product quality issue [Unknown]

NARRATIVE: CASE EVENT DATE: 20241120
